FAERS Safety Report 21872894 (Version 1)
Quarter: 2023Q1

REPORT INFORMATION
  Report Type: Spontaneous
  Country: US (occurrence: None)
  Receive Date: 20230115
  Receipt Date: 20230115
  Transmission Date: 20230417
  Serious: Yes (Death, Life-Threatening, Hospitalization)
  Sender: FDA-Public Use
  Company Number: None

PATIENT
  Age: 79 Year
  Sex: Male
  Weight: 92.25 kg

DRUGS (1)
  1. LUMOXITI [Suspect]
     Active Substance: MOXETUMOMAB PASUDOTOX-TDFK
     Indication: Hairy cell leukaemia
     Dosage: OTHER ROUTE : CHEMOTHERAPY INJECTIONS;?
     Route: 050
     Dates: start: 20220323, end: 20220331

REACTIONS (7)
  - Abdominal distension [None]
  - Weight increased [None]
  - Capillary leak syndrome [None]
  - Feeling abnormal [None]
  - Confusional state [None]
  - Gait disturbance [None]
  - Balance disorder [None]

NARRATIVE: CASE EVENT DATE: 20220323
